FAERS Safety Report 4994452-6 (Version None)
Quarter: 2006Q2

REPORT INFORMATION
  Report Type: 
  Country: None (occurrence: None)
  Receive Date: 20060503
  Receipt Date: 20060421
  Transmission Date: 20061013
  Serious: Yes (Hospitalization)
  Sender: FDA-Public Use
  Company Number: 2006055652

PATIENT
  Age: 70 Year
  Sex: Male

DRUGS (17)
  1. SUTENT [Suspect]
     Indication: RENAL CELL CARCINOMA STAGE UNSPECIFIED
     Dosage: (37.5 MG, DAILY), ORAL
     Route: 048
     Dates: start: 20051208, end: 20060416
  2. VASOTEC [Concomitant]
  3. TAPAZOLE [Concomitant]
  4. UNIDET (TOLTERODINE) [Concomitant]
  5. IMIPRAMINE [Concomitant]
  6. XALATAN [Concomitant]
  7. MULTIVITAMIN [Concomitant]
  8. ZOMETA [Concomitant]
  9. ACETAMINOPHEN [Concomitant]
  10. POLYSPORIN OINTMENT (BACITRACIN ZINC, POLYMYXIN B SULFATE) [Concomitant]
  11. ALUMINUM HYDROXIDE AND MAGNESIUM TRISILICATE [Concomitant]
  12. ZANTAC [Concomitant]
  13. NYSTATIN [Concomitant]
  14. COLACE (DOCUSATE SODIUM) [Concomitant]
  15. LOSEC (OMEPRAZOLE) [Concomitant]
  16. MAGIC MOUTHWASH (ALUMINIUM HYDROXIDE, DIPHENHYDRAMINE HYDROCHLORIDE, L [Concomitant]
  17. PREPARATION H (LIVE YEAST CELL EXTRACT, SHARK-LIVER OIL) [Concomitant]

REACTIONS (2)
  - AORTIC DISSECTION [None]
  - HYPERTENSIVE CRISIS [None]
